FAERS Safety Report 14740298 (Version 1)
Quarter: 2018Q2

REPORT INFORMATION
  Report Type: Spontaneous
  Country: GB (occurrence: GB)
  Receive Date: 20180410
  Receipt Date: 20180410
  Transmission Date: 20180711
  Serious: Yes (Other)
  Sender: FDA-Public Use
  Company Number: GB-BAYER-2018-066530

PATIENT
  Age: 34 Year
  Sex: Female

DRUGS (1)
  1. CLARITYN 10 MG [Suspect]
     Active Substance: LORATADINE
     Dosage: UNK

REACTIONS (1)
  - Hallucination [Recovered/Resolved]

NARRATIVE: CASE EVENT DATE: 20180323
